FAERS Safety Report 12310336 (Version 2)
Quarter: 2016Q2

REPORT INFORMATION
  Report Type: Spontaneous
  Country: PE (occurrence: PE)
  Receive Date: 20160427
  Receipt Date: 20160628
  Transmission Date: 20160815
  Serious: Yes (Hospitalization)
  Sender: FDA-Public Use
  Company Number: PE-NOVOPROD-489255

PATIENT
  Age: 51 Year
  Sex: Female

DRUGS (2)
  1. GLIBENCLAMIDA [Concomitant]
  2. NOVORAPID [Suspect]
     Active Substance: INSULIN ASPART
     Indication: DIABETES MELLITUS
     Dosage: 10 IU, BID (MORNING AND AFTER NOON)
     Route: 058
     Dates: start: 20160315

REACTIONS (1)
  - Gangrene [Not Recovered/Not Resolved]

NARRATIVE: CASE EVENT DATE: 20160328
